FAERS Safety Report 21197957 (Version 3)
Quarter: 2022Q4

REPORT INFORMATION
  Report Type: Report from Study
  Country: US (occurrence: US)
  Receive Date: 20220810
  Receipt Date: 20221018
  Transmission Date: 20230112
  Serious: Yes (Hospitalization, Other)
  Sender: FDA-Public Use
  Company Number: US-BRISTOL-MYERS SQUIBB COMPANY-2022-082705

PATIENT
  Age: 43 Year
  Sex: Male
  Weight: 51.3 kg

DRUGS (15)
  1. AZACITIDINE [Suspect]
     Active Substance: AZACITIDINE
     Indication: Myelodysplastic syndrome
     Dosage: 7 DAYS WITHIN THE FIRST 9 CALENDAR DAYS OF EACH 28-DAY CYCLE (75 MG/M2,1 IN 1 D)
     Route: 042
     Dates: start: 20220623
  2. LEMZOPARLIMAB [Suspect]
     Active Substance: LEMZOPARLIMAB
     Indication: Myelodysplastic syndrome
     Dosage: ON DAYS 1, 8, 15, AND 22 OF A 28 DAY CYCLE 1 IN 1 WK
     Route: 042
     Dates: start: 20220630
  3. LEMZOPARLIMAB [Suspect]
     Active Substance: LEMZOPARLIMAB
     Dosage: ON DAYS 1, 8, 15, AND 22 OF A 28 DAY CYCLE 1 IN 1 WK
     Route: 042
     Dates: start: 20220715
  4. VENETOCLAX [Suspect]
     Active Substance: VENETOCLAX
     Indication: Myelodysplastic syndrome
     Dosage: DAY 1 TO DAY 14 OF EACH 28 DAY CYCLE (400 MG,1 IN 1 D)
     Route: 048
     Dates: start: 20220623
  5. URSODIOLISIN [Concomitant]
     Indication: Alanine aminotransferase increased
     Dates: start: 20220623
  6. OXYCODONE [Concomitant]
     Active Substance: OXYCODONE
     Indication: Pain
     Dates: start: 20220622
  7. ZOFRAN [Concomitant]
     Active Substance: ONDANSETRON HYDROCHLORIDE
     Indication: Nausea
     Dates: start: 20220623
  8. ZOFRAN [Concomitant]
     Active Substance: ONDANSETRON HYDROCHLORIDE
     Indication: Vomiting
  9. SENOKOT [Concomitant]
     Active Substance: SENNOSIDES
     Indication: Constipation
     Dosage: 1-2 TAB PER DAY
     Dates: start: 20220701
  10. COLACE [Concomitant]
     Active Substance: DOCUSATE SODIUM
     Indication: Constipation
     Dosage: 1-2 TAB PER DAY
     Dates: start: 20220701
  11. LEVAQUIN [Concomitant]
     Active Substance: LEVOFLOXACIN
     Indication: Neutrophil count decreased
     Dates: start: 20220630
  12. LEVAQUIN [Concomitant]
     Active Substance: LEVOFLOXACIN
     Indication: Prophylaxis
  13. BENADRYL [Concomitant]
     Active Substance: DIPHENHYDRAMINE HYDROCHLORIDE
     Indication: Allergic transfusion reaction
     Dosage: ONCE
     Dates: start: 20220630
  14. ALLOPURINOL [Concomitant]
     Active Substance: ALLOPURINOL
     Indication: Alanine aminotransferase increased
     Dates: start: 20220624
  15. ALLOPURINOL [Concomitant]
     Active Substance: ALLOPURINOL
     Indication: Blood uric acid

REACTIONS (3)
  - Febrile neutropenia [Recovered/Resolved]
  - Anaemia [Recovered/Resolved]
  - Oesophageal candidiasis [Recovered/Resolved]

NARRATIVE: CASE EVENT DATE: 20220701
